FAERS Safety Report 17749009 (Version 1)
Quarter: 2020Q2

REPORT INFORMATION
  Report Type: Spontaneous
  Country: DE (occurrence: DE)
  Receive Date: 20200505
  Receipt Date: 20200505
  Transmission Date: 20200714
  Serious: Yes (Other)
  Sender: FDA-Public Use
  Company Number: DE-TEVA-2020-DE-1231917

PATIENT
  Sex: Male

DRUGS (2)
  1. COPAXONE [Suspect]
     Active Substance: GLATIRAMER ACETATE
     Indication: MULTIPLE SCLEROSIS
     Dates: start: 20160801, end: 20190930
  2. COPAXONE [Suspect]
     Active Substance: GLATIRAMER ACETATE
     Indication: MULTIPLE SCLEROSIS
     Dosage: 20 MILLIGRAM DAILY;
     Dates: start: 20131007, end: 20160731

REACTIONS (6)
  - Bipolar I disorder [Unknown]
  - Suicidal ideation [Unknown]
  - Social anxiety disorder [Unknown]
  - Pain [Unknown]
  - Panic attack [Unknown]
  - Aggression [Unknown]

NARRATIVE: CASE EVENT DATE: 2016
